FAERS Safety Report 10420708 (Version 1)
Quarter: 2014Q3

REPORT INFORMATION
  Report Type: Spontaneous
  Country: US (occurrence: None)
  Receive Date: 20140829
  Receipt Date: 20140829
  Transmission Date: 20150326
  Serious: No
  Sender: FDA-Public Use
  Company Number: None

PATIENT
  Age: 72 Year
  Sex: Female
  Weight: 74.84 kg

DRUGS (1)
  1. HYDROCORTISONE. [Suspect]
     Active Substance: HYDROCORTISONE
     Indication: ARTHROPOD BITE
     Dates: start: 20140822

REACTIONS (6)
  - Application site swelling [None]
  - Application site vesicles [None]
  - Hypersensitivity [None]
  - Blister rupture [None]
  - Application site pain [None]
  - Pain in extremity [None]

NARRATIVE: CASE EVENT DATE: 20140822
